FAERS Safety Report 25844302 (Version 1)
Quarter: 2025Q3

REPORT INFORMATION
  Report Type: Spontaneous
  Country: US (occurrence: US)
  Receive Date: 20250925
  Receipt Date: 20250925
  Transmission Date: 20251021
  Serious: No
  Sender: TEVA
  Company Number: US-TEVA-VS-3372636

PATIENT
  Age: 66 Year
  Sex: Female

DRUGS (2)
  1. COPAXONE [Suspect]
     Active Substance: GLATIRAMER ACETATE
     Indication: Multiple sclerosis
     Route: 065
  2. COPAXONE [Suspect]
     Active Substance: GLATIRAMER ACETATE
     Route: 065

REACTIONS (9)
  - Urticaria [Unknown]
  - Off label use [Unknown]
  - Erythema [Unknown]
  - Wrong device used [Unknown]
  - Adverse event [Unknown]
  - Drug intolerance [Unknown]
  - Swelling [Unknown]
  - Pruritus [Unknown]
  - Product use issue [Unknown]
